FAERS Safety Report 10260837 (Version 1)
Quarter: 2014Q2

REPORT INFORMATION
  Report Type: Spontaneous
  Country: BE (occurrence: BE)
  Receive Date: 20140626
  Receipt Date: 20140626
  Transmission Date: 20141212
  Serious: Yes (Other)
  Sender: FDA-Public Use
  Company Number: BE-009507513-1406BEL010480

PATIENT
  Age: 68 Year
  Sex: Male

DRUGS (3)
  1. ZOCOR 40 MG, COMPRIM?S PELLICUL?S [Suspect]
     Dosage: 40MG,DAILY
     Route: 048
  2. ZOCOR 40 MG, COMPRIM?S PELLICUL?S [Suspect]
     Dosage: ONE 40 MG TABLET IN TWO AND TAKING HALF A TABLET IN THE MORNING AND OTHER HALF IN THE EVENING
     Route: 048
  3. OLMETEC [Concomitant]

REACTIONS (4)
  - Knee operation [Unknown]
  - Dizziness [Unknown]
  - Wrong technique in drug usage process [Unknown]
  - Arthropathy [Unknown]
